FAERS Safety Report 10204775 (Version 2)
Quarter: 2014Q2

REPORT INFORMATION
  Report Type: Spontaneous
  Country: US (occurrence: US)
  Receive Date: 20140529
  Receipt Date: 20140624
  Transmission Date: 20141212
  Serious: Yes (Other)
  Sender: FDA-Public Use
  Company Number: US-ASTRAZENECA-2014SE35638

PATIENT
  Age: 61 Year
  Sex: Female
  Weight: 62.6 kg

DRUGS (7)
  1. PULMICORT RESPULES [Suspect]
     Indication: CHRONIC OBSTRUCTIVE PULMONARY DISEASE
     Route: 055
  2. MS CONTIN [Concomitant]
     Indication: PAIN
     Route: 048
     Dates: start: 2007
  3. ALBUTEROL IPRATROPIUM BROMIDE [Concomitant]
     Dosage: FOUR TIMES A DAY
     Route: 055
     Dates: end: 2013
  4. ALBUTEROL IPRATROPIUM BROMIDE [Concomitant]
     Dosage: THREE TIMES A DAY
     Route: 055
     Dates: start: 2013
  5. ALBUTEROL SULFITE [Concomitant]
     Dosage: THREE TIMES A DAY
     Route: 055
     Dates: start: 2013
  6. VALIUM [Concomitant]
  7. VALIUM [Concomitant]

REACTIONS (7)
  - Neoplasm malignant [Unknown]
  - Pneumonia [Recovered/Resolved]
  - Haemoptysis [Unknown]
  - Chronic obstructive pulmonary disease [Unknown]
  - Pain [Not Recovered/Not Resolved]
  - Respiratory tract infection [Not Recovered/Not Resolved]
  - Off label use [Unknown]
